FAERS Safety Report 13732545 (Version 7)
Quarter: 2018Q1

REPORT INFORMATION
  Report Type: Report from Study
  Country: AT (occurrence: AT)
  Receive Date: 20170707
  Receipt Date: 20180203
  Transmission Date: 20180508
  Serious: Yes (Hospitalization)
  Sender: FDA-Public Use
  Company Number: AT-AMGEN-AUTCT2017079144

PATIENT
  Age: 14 Year
  Sex: Male
  Weight: 54.2 kg

DRUGS (35)
  1. CARFILZOMIB [Suspect]
     Active Substance: CARFILZOMIB
     Dosage: 55.44 UNK, PER CHEMO REGIM
     Route: 042
  2. ZOFRAN [Concomitant]
     Active Substance: ONDANSETRON HYDROCHLORIDE
     Dosage: 8 MG, UNK
     Route: 042
     Dates: start: 20170516
  3. AMIKACIN [Concomitant]
     Active Substance: AMIKACIN
     Dosage: 500-750 MG, UNK
     Route: 042
     Dates: start: 20170515, end: 20170721
  4. PARACETAMOL [Concomitant]
     Active Substance: ACETAMINOPHEN
     Dosage: 500 MG, UNK
     Route: 042
     Dates: start: 20170515
  5. EUTHYROX [Concomitant]
     Active Substance: LEVOTHYROXINE SODIUM
     Dosage: 37.5- 75 MCG, UNK
     Dates: start: 20170421
  6. LITALIR [Concomitant]
     Active Substance: HYDROXYUREA
     Dosage: 500 MG, UNK
     Route: 048
     Dates: start: 20170426, end: 20170515
  7. CYTARABINE. [Suspect]
     Active Substance: CYTARABINE
     Indication: ACUTE LYMPHOCYTIC LEUKAEMIA
     Dosage: 112.3 MG, PER CHEMO REGIM
     Route: 042
     Dates: start: 20170619
  8. PANTOLOC [Concomitant]
     Active Substance: PANTOPRAZOLE SODIUM
     Dosage: 40 MG, UNK
     Dates: start: 20170423, end: 20170722
  9. FORTECORTIN [Concomitant]
     Active Substance: DEXAMETHASONE
     Dosage: 3 MG, UNK
     Route: 048
     Dates: start: 20170424, end: 20170505
  10. 6-MERCAPTOPURINE MONOHYDRATE [Suspect]
     Active Substance: MERCAPTOPURINE
     Indication: ACUTE LYMPHOCYTIC LEUKAEMIA
     Dosage: 90 MG, PER CHEMO REGIM
     Route: 065
     Dates: start: 20170619
  11. CYCLOPHOSPHAMIDE. [Suspect]
     Active Substance: CYCLOPHOSPHAMIDE
     Indication: ACUTE LYMPHOCYTIC LEUKAEMIA
     Dosage: 1497.37 MG, PER CHEMO REGIM
     Route: 065
     Dates: start: 20170619
  12. PREDNISOLUT [Concomitant]
     Active Substance: PREDNISOLONE
     Indication: PREMEDICATION
     Dosage: 100 TO 250 MG, UNK
     Route: 042
     Dates: start: 20170430, end: 20170430
  13. OTRIVIN [Concomitant]
     Active Substance: XYLOMETAZOLINE
     Dosage: 1 GTT, UNK
     Route: 045
     Dates: start: 20170430
  14. CARFILZOMIB [Suspect]
     Active Substance: CARFILZOMIB
     Dosage: 52.2 UNK, PER CHEMO REGIM
     Route: 042
  15. CARFILZOMIB [Suspect]
     Active Substance: CARFILZOMIB
     Dosage: UNK, PER CHEMO REGIM
     Route: 042
     Dates: start: 20170727
  16. PEG/L-ASPARAGINASE [Suspect]
     Active Substance: PEGASPARGASE
     Indication: ACUTE LYMPHOCYTIC LEUKAEMIA
     Dosage: 3750 UNK, PER CHEMO REGIM
     Route: 065
     Dates: start: 20170519
  17. DIBONDRIN [Concomitant]
     Active Substance: DIPHENHYDRAMINE HYDROCHLORIDE
     Dosage: 7.5 TO 30 MG, UNK
     Route: 042
     Dates: start: 20170430
  18. VINCRISTINE [Suspect]
     Active Substance: VINCRISTINE
     Indication: ACUTE LYMPHOCYTIC LEUKAEMIA
     Dosage: 2 MG, PER CHEMO REGIM
     Route: 065
     Dates: start: 20170516
  19. DEXAMETHASONE. [Concomitant]
     Active Substance: DEXAMETHASONE
     Dosage: 2-10 MG, UNK
     Dates: start: 20170516, end: 20170605
  20. CARFILZOMIB [Suspect]
     Active Substance: CARFILZOMIB
     Dosage: 27 UNK, PER CHEMO REGIM
     Route: 042
  21. VANCOMYCIN [Suspect]
     Active Substance: VANCOMYCIN
     Indication: PRODUCT USED FOR UNKNOWN INDICATION
     Dosage: 500 MG, UNK
     Route: 042
     Dates: start: 20170517, end: 20170526
  22. SUCRALAN [Concomitant]
     Dosage: 5 ML, UNK
     Route: 048
     Dates: start: 20170516, end: 20170517
  23. IG VENA [Concomitant]
     Active Substance: HUMAN IMMUNOGLOBULIN G
     Dosage: 20 G, UNK
     Route: 042
     Dates: start: 20170518
  24. SULTANOL [Concomitant]
     Active Substance: ALBUTEROL SULFATE
     Dosage: 2 UNK, UNK
     Route: 050
     Dates: start: 20170518
  25. FEDIP [Concomitant]
     Dosage: 2 TO 3 GTT, UNK
     Route: 060
     Dates: start: 20170519
  26. CARFILZOMIB [Suspect]
     Active Substance: CARFILZOMIB
     Indication: ACUTE LYMPHOCYTIC LEUKAEMIA
     Dosage: 36 MG/M2, PER CHEMO REGIM
     Route: 042
     Dates: start: 20170516
  27. DAUNORUBICIN [Suspect]
     Active Substance: DAUNORUBICIN
     Indication: ACUTE LYMPHOCYTIC LEUKAEMIA
     Dosage: 38.43 MG, PER CHEMO REGIM
     Route: 065
     Dates: start: 20170516
  28. PIPITAZ [Suspect]
     Active Substance: PIPERACILLIN SODIUM\TAZOBACTAM SODIUM
     Indication: PRODUCT USED FOR UNKNOWN INDICATION
     Dosage: 4 G, UNK
     Route: 042
     Dates: start: 20170513, end: 20170717
  29. TRADOLAN [Suspect]
     Active Substance: TRAMADOL
     Indication: PRODUCT USED FOR UNKNOWN INDICATION
     Dosage: UNK
     Route: 065
  30. MEFENABENE [Concomitant]
     Dosage: 500 MG, UNK
     Route: 048
     Dates: start: 20170518
  31. EUSAPRIM [Concomitant]
     Active Substance: SULFAMETHOXAZOLE\TRIMETHOPRIM
     Dosage: 200-240 MG, UNK
     Dates: start: 20170421, end: 20170719
  32. NACL [Concomitant]
     Active Substance: SODIUM CHLORIDE
     Dosage: 10 TO 1000 ML, UNK
     Dates: start: 20170519
  33. CAPTOPRIL. [Concomitant]
     Active Substance: CAPTOPRIL
     Dosage: 12.5 TO 25 MG, UNK
     Route: 048
     Dates: start: 20170519, end: 20170519
  34. TRAMABENE [Concomitant]
     Dosage: 15 GTT AND 50-300 MG UNK
     Dates: start: 20170520, end: 20170710
  35. ELOMEL [Concomitant]
     Dosage: 1000 ML, UNK
     Route: 042
     Dates: start: 20170430

REACTIONS (4)
  - Confusional state [Recovered/Resolved]
  - Posterior reversible encephalopathy syndrome [Recovered/Resolved]
  - Febrile neutropenia [Recovered/Resolved]
  - Febrile neutropenia [Recovered/Resolved]

NARRATIVE: CASE EVENT DATE: 20170521
